FAERS Safety Report 11952674 (Version 1)
Quarter: 2016Q1

REPORT INFORMATION
  Report Type: Spontaneous
  Country: US (occurrence: US)
  Receive Date: 20160126
  Receipt Date: 20160126
  Transmission Date: 20160526
  Serious: No
  Sender: FDA-Public Use
  Company Number: US-BAUSCH-BL-2015-018327

PATIENT
  Age: 67 Year
  Sex: Female
  Weight: 108.96 kg

DRUGS (4)
  1. LEVOTHYROXINE. [Concomitant]
     Active Substance: LEVOTHYROXINE
     Indication: HYPOTHYROIDISM
     Route: 048
  2. CRESTOR [Concomitant]
     Active Substance: ROSUVASTATIN CALCIUM
     Indication: HYPERLIPIDAEMIA
     Route: 048
  3. ELIQUIS [Concomitant]
     Active Substance: APIXABAN
     Indication: COAGULOPATHY
     Route: 047
  4. ALAWAY [Suspect]
     Active Substance: KETOTIFEN FUMARATE
     Indication: DRY EYE
     Route: 047
     Dates: start: 20150724, end: 20150725

REACTIONS (1)
  - Vision blurred [Recovered/Resolved]

NARRATIVE: CASE EVENT DATE: 20150724
